FAERS Safety Report 15046472 (Version 4)
Quarter: 2019Q1

REPORT INFORMATION
  Report Type: Report from Study
  Country: US (occurrence: US)
  Receive Date: 20180621
  Receipt Date: 20190311
  Transmission Date: 20190417
  Serious: Yes (Hospitalization, Other)
  Sender: FDA-Public Use
  Company Number: US-ACTELION-A-NJ2018-174242

PATIENT
  Sex: Female

DRUGS (2)
  1. VENTAVIS [Suspect]
     Active Substance: ILOPROST
     Indication: PULMONARY ARTERIAL HYPERTENSION
     Dosage: UNK
     Route: 055
  2. OPSUMIT [Suspect]
     Active Substance: MACITENTAN
     Indication: PULMONARY ARTERIAL HYPERTENSION
     Dosage: 10 MG, QD
     Route: 048
     Dates: start: 20140529

REACTIONS (7)
  - Blood creatinine increased [Unknown]
  - Psoriatic arthropathy [Unknown]
  - Cystitis [Unknown]
  - Internal haemorrhage [Unknown]
  - Pneumonia [Recovering/Resolving]
  - Dehydration [Unknown]
  - Pulmonary hypertension [Unknown]
